APPROVED DRUG PRODUCT: FAMOTIDINE
Active Ingredient: FAMOTIDINE
Strength: 40MG
Dosage Form/Route: TABLET;ORAL
Application: A218631 | Product #002 | TE Code: AB
Applicant: REGCON HOLDINGS LLC
Approved: Mar 25, 2025 | RLD: No | RS: No | Type: RX